FAERS Safety Report 8988331 (Version 2)
Quarter: 2013Q1

REPORT INFORMATION
  Report Type: Spontaneous
  Country: US (occurrence: None)
  Receive Date: 20121219
  Receipt Date: 20130205
  Transmission Date: 20140127
  Serious: Yes (Other)
  Sender: FDA-Public Use
  Company Number: 2012P1066519

PATIENT
  Age: 56 Year
  Sex: Female

DRUGS (2)
  1. INFUMORPH [Suspect]
     Indication: PAIN
  2. INFUMORPH [Suspect]
     Indication: COMPLEX REGIONAL PAIN SYNDROME

REACTIONS (3)
  - Device leakage [None]
  - Drug ineffective [None]
  - Device breakage [None]
